FAERS Safety Report 8451078-X (Version None)
Quarter: 2012Q2

REPORT INFORMATION
  Report Type: 
  Country: None (occurrence: None)
  Receive Date: 20120620
  Receipt Date: 20120607
  Transmission Date: 20120825
  Serious: Yes (Hospitalization)
  Sender: FDA-Public Use
  Company Number: US-ROCHE-1076158

PATIENT
  Age: 79 Year
  Sex: Male

DRUGS (2)
  1. CELLCEPT [Suspect]
     Indication: VASCULITIS
     Route: 048
  2. CELLCEPT [Suspect]
     Route: 048

REACTIONS (8)
  - ILL-DEFINED DISORDER [None]
  - TRANSIENT ISCHAEMIC ATTACK [None]
  - ASTHENIA [None]
  - DYSSTASIA [None]
  - HYPOXIA [None]
  - RED BLOOD CELL COUNT DECREASED [None]
  - WEIGHT INCREASED [None]
  - ANAEMIA [None]
